FAERS Safety Report 24918047 (Version 2)
Quarter: 2025Q3

REPORT INFORMATION
  Report Type: Spontaneous
  Country: US (occurrence: US)
  Receive Date: 20250203
  Receipt Date: 20250728
  Transmission Date: 20251020
  Serious: Yes (Hospitalization)
  Sender: ROCHE
  Company Number: US-ROCHE-10000194972

PATIENT
  Sex: Female

DRUGS (11)
  1. XOLAIR PFS [Suspect]
     Active Substance: OMALIZUMAB
     Indication: Asthma
     Route: 058
  2. XOLAIR PFS [Suspect]
     Active Substance: OMALIZUMAB
     Route: 058
  3. ALBUTEROL SU AER 108 [Concomitant]
  4. PREDNISONE POW [Concomitant]
  5. FUROSEMIDE POW [Concomitant]
  6. HYDRALAZINE POW [Concomitant]
  7. LEVOTHYROXIN POW [Concomitant]
  8. MONTELUKAST POW [Concomitant]
  9. NIFEDIPINE POW [Concomitant]
  10. OLMESARTAN M POW [Concomitant]
  11. THEOPHYLLINE POW [Concomitant]

REACTIONS (5)
  - Off label use [Unknown]
  - Muscle disorder [Not Recovered/Not Resolved]
  - Ligament rupture [Not Recovered/Not Resolved]
  - Arthralgia [Not Recovered/Not Resolved]
  - Urticaria [Not Recovered/Not Resolved]
